FAERS Safety Report 10477918 (Version 1)
Quarter: 2014Q3

REPORT INFORMATION
  Report Type: Spontaneous
  Country: US (occurrence: US)
  Receive Date: 20140926
  Receipt Date: 20140926
  Transmission Date: 20150326
  Serious: Yes (Death, Other)
  Sender: FDA-Public Use
  Company Number: US-009507513-1409USA012756

PATIENT
  Sex: Female

DRUGS (1)
  1. JANUMET [Suspect]
     Active Substance: METFORMIN HYDROCHLORIDE\SITAGLIPTIN PHOSPHATE
     Dosage: UNK
     Route: 048
     Dates: start: 200906, end: 201102

REACTIONS (3)
  - Pancreatic carcinoma metastatic [Unknown]
  - Death [Fatal]
  - Metastases to liver [Unknown]

NARRATIVE: CASE EVENT DATE: 20110519
